FAERS Safety Report 6263524-0 (Version None)
Quarter: 2009Q3

REPORT INFORMATION
  Report Type: 
  Country: None (occurrence: None)
  Receive Date: 20090710
  Receipt Date: 20090330
  Transmission Date: 20100115
  Serious: No
  Sender: FDA-Public Use
  Company Number: A0777421A

PATIENT
  Sex: Female

DRUGS (2)
  1. TYKERB [Suspect]
     Indication: DRUG USE FOR UNKNOWN INDICATION
     Route: 048
     Dates: start: 20081101
  2. XELODA [Suspect]
     Indication: DRUG USE FOR UNKNOWN INDICATION
     Dates: start: 20081101

REACTIONS (2)
  - DIARRHOEA [None]
  - NAUSEA [None]
